FAERS Safety Report 22596092 (Version 1)
Quarter: 2023Q2

REPORT INFORMATION
  Report Type: Spontaneous
  Country: IT (occurrence: IT)
  Receive Date: 20230613
  Receipt Date: 20230613
  Transmission Date: 20230722
  Serious: Yes (Life-Threatening)
  Sender: FDA-Public Use
  Company Number: IT-DOCGEN-2301630

PATIENT
  Age: 64 Year
  Sex: Female

DRUGS (5)
  1. TOPAMAX [Suspect]
     Active Substance: TOPIRAMATE
     Indication: Depression
     Dosage: 50 MILLIGRAM, ONCE A DAY?HAS BEEN TAKING THE FOLLOWING DRUGS FOR 30 YEARS FOR ATYPICAL DEPRESSION ON
     Route: 048
  2. ELIQUIS [Concomitant]
     Active Substance: APIXABAN
     Indication: Thrombosis
     Dosage: 1 DOSAGE FORM, ONCE A DAY
  3. ELIQUIS [Concomitant]
     Active Substance: APIXABAN
     Indication: Product used for unknown indication
  4. TOFRANIL [Concomitant]
     Active Substance: IMIPRAMINE HYDROCHLORIDE
     Indication: Depression
     Dosage: 1 DOSAGE FORM, ONCE A DAY
  5. PRAMIPEXOLE [Concomitant]
     Active Substance: PRAMIPEXOLE
     Indication: Depression
     Dosage: 1 DOSAGE FORM, ONCE A DAY

REACTIONS (3)
  - Osteoporosis [Not Recovered/Not Resolved]
  - Diplopia [Not Recovered/Not Resolved]
  - Off label use [Unknown]

NARRATIVE: CASE EVENT DATE: 20220101
